FAERS Safety Report 6998674-4 (Version None)
Quarter: 2010Q3

REPORT INFORMATION
  Report Type: 
  Country: None (occurrence: None)
  Receive Date: 20100920
  Receipt Date: 20100112
  Transmission Date: 20110219
  Serious: No
  Sender: FDA-Public Use
  Company Number: US-ASTRAZENECA-2010SE01661

PATIENT
  Age: 86 Year
  Sex: Female
  Weight: 76.2 kg

DRUGS (13)
  1. SEROQUEL [Suspect]
     Indication: DEMENTIA
     Route: 048
     Dates: start: 20091001, end: 20091001
  2. SEROQUEL [Suspect]
     Indication: DEPRESSION
     Route: 048
     Dates: start: 20091001, end: 20091001
  3. SEROQUEL [Suspect]
     Route: 048
     Dates: start: 20091229, end: 20100104
  4. SEROQUEL [Suspect]
     Route: 048
     Dates: start: 20091229, end: 20100104
  5. RELAFEN [Concomitant]
  6. KLONOPIN [Concomitant]
  7. LEXAPRO [Concomitant]
  8. VYTORIN [Concomitant]
  9. BENICAR [Concomitant]
  10. LEVOTHYROXINE [Concomitant]
  11. METOPROLOL [Concomitant]
  12. FOSAMAX [Concomitant]
  13. HYDROCODEINE [Concomitant]

REACTIONS (3)
  - ABASIA [None]
  - DISORIENTATION [None]
  - WEIGHT DECREASED [None]
